FAERS Safety Report 5636313-5 (Version None)
Quarter: 2008Q1

REPORT INFORMATION
  Report Type: 
  Country: None (occurrence: None)
  Receive Date: 20080225
  Receipt Date: 20080111
  Transmission Date: 20080703
  Serious: No
  Sender: FDA-Public Use
  Company Number: A0701446A

PATIENT
  Age: 22 Year
  Sex: Female
  Weight: 68.2 kg

DRUGS (2)
  1. VERAMYST [Suspect]
     Route: 045
     Dates: start: 20071221, end: 20071221
  2. SUDAFED 12 HOUR [Concomitant]

REACTIONS (4)
  - CHEST DISCOMFORT [None]
  - DYSPNOEA [None]
  - ERYTHEMA [None]
  - FLUSHING [None]
